FAERS Safety Report 9359697 (Version 1)
Quarter: 2013Q2

REPORT INFORMATION
  Report Type: Spontaneous
  Country: BR (occurrence: BR)
  Receive Date: 20130621
  Receipt Date: 20130621
  Transmission Date: 20140414
  Serious: Yes (Life-Threatening)
  Sender: FDA-Public Use
  Company Number: BR-MERCK-1303BRA004964

PATIENT
  Sex: Male

DRUGS (2)
  1. PEG-INTRON [Suspect]
     Dosage: UNK
     Route: 058
     Dates: start: 20130301, end: 201305
  2. RIBAVIRIN [Concomitant]
     Dosage: UNK
     Dates: start: 20130301

REACTIONS (4)
  - Anaemia [Unknown]
  - Tremor [Unknown]
  - Pain [Recovered/Resolved]
  - Chills [Unknown]
